FAERS Safety Report 5754878-X (Version None)
Quarter: 2008Q2

REPORT INFORMATION
  Report Type: 
  Country: None (occurrence: None)
  Receive Date: 20080527
  Receipt Date: 20080515
  Transmission Date: 20081010
  Serious: Yes (Life-Threatening, Hospitalization)
  Sender: FDA-Public Use
  Company Number: TPA2008A00591

PATIENT
  Age: 50 Year
  Sex: Male
  Weight: 106.5953 kg

DRUGS (8)
  1. ACTOS [Suspect]
     Indication: TYPE 2 DIABETES MELLITUS
     Dosage: 15 MG, 1 IN 1 D, PER ORAL
     Route: 048
     Dates: start: 19980101, end: 20080117
  2. SYNTHROID [Concomitant]
  3. LANTUS [Concomitant]
  4. HUMALOG [Concomitant]
  5. ALLEGRA [Concomitant]
  6. PRILOSEC [Concomitant]
  7. TOPROL-XL [Concomitant]
  8. LEXAPRO [Concomitant]

REACTIONS (7)
  - DYSPNOEA [None]
  - GASTROINTESTINAL HAEMORRHAGE [None]
  - HEPATIC CIRRHOSIS [None]
  - HEPATIC FAILURE [None]
  - OESOPHAGEAL VARICES HAEMORRHAGE [None]
  - PORTAL HYPERTENSION [None]
  - VARICES OESOPHAGEAL [None]
